FAERS Safety Report 6784655-2 (Version None)
Quarter: 2010Q2

REPORT INFORMATION
  Report Type: 
  Country: None (occurrence: None)
  Receive Date: 20100622
  Receipt Date: 20100615
  Transmission Date: 20101027
  Serious: Yes (Other)
  Sender: FDA-Public Use
  Company Number: B0661243A

PATIENT
  Sex: Female

DRUGS (1)
  1. CLAVAMOX [Suspect]
     Indication: INFECTION
     Dosage: 6IUAX PER DAY
     Route: 048
     Dates: start: 20100602, end: 20100608

REACTIONS (8)
  - COUGH [None]
  - ERYTHEMA MULTIFORME [None]
  - LIP SWELLING [None]
  - OCULAR HYPERAEMIA [None]
  - PRURITUS [None]
  - PYREXIA [None]
  - RASH [None]
  - TOXIC SKIN ERUPTION [None]
